FAERS Safety Report 5221784-9 (Version None)
Quarter: 2007Q1

REPORT INFORMATION
  Report Type: 
  Country: None (occurrence: None)
  Receive Date: 20070129
  Receipt Date: 20070119
  Transmission Date: 20070707
  Serious: Yes (Hospitalization, Other)
  Sender: FDA-Public Use
  Company Number: DE-JNJFOC-20070105408

PATIENT
  Sex: Female

DRUGS (5)
  1. REMICADE [Suspect]
     Route: 042
  2. REMICADE [Suspect]
     Indication: POLYMYALGIA RHEUMATICA
     Dosage: 4TH INFUSION
     Route: 042
  3. DECORTIN [Concomitant]
     Indication: POLYMYALGIA RHEUMATICA
     Route: 065
  4. METEX [Concomitant]
     Indication: POLYMYALGIA RHEUMATICA
     Route: 065
  5. SAROTEN [Concomitant]
     Indication: DEPRESSION
     Route: 065

REACTIONS (1)
  - JOINT EFFUSION [None]
